FAERS Safety Report 7646279-4 (Version None)
Quarter: 2011Q3

REPORT INFORMATION
  Report Type: 
  Country: None (occurrence: None)
  Receive Date: 20110801
  Receipt Date: 20110726
  Transmission Date: 20111222
  Serious: No
  Sender: FDA-Public Use
  Company Number: US-BIOGENIDEC-2011BI028100

PATIENT
  Sex: Female

DRUGS (2)
  1. TYSABRI [Suspect]
     Indication: MULTIPLE SCLEROSIS
     Route: 042
     Dates: start: 20100218
  2. TYSABRI [Suspect]
     Route: 042
     Dates: start: 20061106, end: 20070627

REACTIONS (2)
  - TEMPERATURE INTOLERANCE [None]
  - SPEECH DISORDER [None]
